FAERS Safety Report 25509664 (Version 1)
Quarter: 2025Q3

REPORT INFORMATION
  Report Type: Spontaneous
  Country: US (occurrence: None)
  Receive Date: 20250702
  Receipt Date: 20250702
  Transmission Date: 20251020
  Serious: Yes (Other)
  Sender: FDA-CTU
  Company Number: None

PATIENT
  Age: 82 Year
  Sex: Female

DRUGS (1)
  1. CYLTEZO [Suspect]
     Active Substance: ADALIMUMAB-ADBM
     Dates: start: 20250106, end: 20250702

REACTIONS (6)
  - Muscle spasms [None]
  - Muscle spasms [None]
  - Dyskinesia [None]
  - Muscular weakness [None]
  - Therapy interrupted [None]
  - Drug rechallenge positive [None]

NARRATIVE: CASE EVENT DATE: 20250625
